FAERS Safety Report 6429776-9 (Version None)
Quarter: 2009Q4

REPORT INFORMATION
  Report Type: 
  Country: None (occurrence: None)
  Receive Date: 20091104
  Receipt Date: 20091104
  Transmission Date: 20100525
  Serious: Yes (Hospitalization)
  Sender: FDA-Public Use
  Company Number: None

PATIENT
  Sex: Female
  Weight: 67.586 kg

DRUGS (9)
  1. OPTIRAY 350 [Suspect]
     Indication: COMPUTERISED TOMOGRAM
     Dosage: 100 ML ONCE IV
     Route: 042
     Dates: start: 20091021, end: 20091023
  2. NEXIUM [Concomitant]
  3. CRESTOR [Concomitant]
  4. ATENOLOL [Concomitant]
  5. LISINOPRIL [Concomitant]
  6. MENOSTAR [Concomitant]
  7. LIBRAX [Concomitant]
  8. ALLEGRA [Concomitant]
  9. ASPIRIN [Concomitant]

REACTIONS (8)
  - ABDOMINAL PAIN [None]
  - ANGIOEDEMA [None]
  - COLD SWEAT [None]
  - DIZZINESS [None]
  - GASTROINTESTINAL DISORDER [None]
  - HYPERHIDROSIS [None]
  - HYPOTENSION [None]
  - VOMITING [None]
